FAERS Safety Report 21393390 (Version 2)
Quarter: 2022Q4

REPORT INFORMATION
  Report Type: Spontaneous
  Country: CN (occurrence: CN)
  Receive Date: 20220929
  Receipt Date: 20221021
  Transmission Date: 20230113
  Serious: Yes (Death, Other)
  Sender: FDA-Public Use
  Company Number: CN-FOSUNKITE-FOSUNKITE-20220392

PATIENT
  Age: 58 Year
  Sex: Male

DRUGS (28)
  1. YESCARTA [Suspect]
     Active Substance: AXICABTAGENE CILOLEUCEL
     Indication: Diffuse large B-cell lymphoma
     Dosage: 68 ML (1*10^8 CAR-T CELLS/KG).
     Route: 042
     Dates: start: 20220408, end: 20220408
  2. SINTILIMAB [Concomitant]
     Active Substance: SINTILIMAB
     Indication: Diffuse large B-cell lymphoma
     Dosage: 200MG?D1
     Dates: start: 20220331
  3. SINTILIMAB [Concomitant]
     Active Substance: SINTILIMAB
     Indication: Immunosuppression
     Dosage: 200 MG
     Dates: start: 20220317
  4. SINTILIMAB [Concomitant]
     Active Substance: SINTILIMAB
     Dosage: 100 MG
     Dates: start: 20220420, end: 20220422
  5. SINTILIMAB [Concomitant]
     Active Substance: SINTILIMAB
     Dosage: 200 MG
     Dates: start: 20220504
  6. RITUXIMAB [Concomitant]
     Active Substance: RITUXIMAB
     Indication: Diffuse large B-cell lymphoma
     Dosage: 500MG?D1
     Dates: start: 20220331
  7. RITUXIMAB [Concomitant]
     Active Substance: RITUXIMAB
     Dosage: 500 MG
     Dates: start: 20220317
  8. CARMUSTINE [Concomitant]
     Active Substance: CARMUSTINE
     Indication: Diffuse large B-cell lymphoma
     Dosage: 200MG?D1
     Dates: start: 20220331
  9. FLUDARABINE [Concomitant]
     Active Substance: FLUDARABINE PHOSPHATE
     Indication: Lymphodepletion
     Dosage: 40MG?D1-4
     Dates: start: 20220401
  10. BENDAMUSTINE [Concomitant]
     Active Substance: BENDAMUSTINE
     Indication: Diffuse large B-cell lymphoma
     Dosage: 145 MG?D2-3
     Dates: start: 20220401
  11. IFOSFAMIDE [Concomitant]
     Active Substance: IFOSFAMIDE
     Indication: Lymphodepletion
     Dosage: 2000MG?D2-3?2500MG?D4
     Dates: start: 20220401
  12. CYCLOPHOSPHAMIDE [Concomitant]
     Active Substance: CYCLOPHOSPHAMIDE
     Indication: Chemotherapy
     Dosage: 500 MG Q12H
     Dates: start: 20220224, end: 20220226
  13. CYCLOPHOSPHAMIDE [Concomitant]
     Active Substance: CYCLOPHOSPHAMIDE
     Dosage: 1200 MG D1
     Dates: start: 20220506
  14. EPIRUBICIN [Concomitant]
     Active Substance: EPIRUBICIN
     Indication: Chemotherapy
     Dosage: 120 MG
     Dates: start: 20220224
  15. EPIRUBICIN [Concomitant]
     Active Substance: EPIRUBICIN
     Dosage: 100 MG D1
     Dates: start: 20220506
  16. VINCRISTINE [Concomitant]
     Active Substance: VINCRISTINE
     Indication: Chemotherapy
     Dosage: 2 MG
     Dates: start: 20220224
  17. VINCRISTINE [Concomitant]
     Active Substance: VINCRISTINE
     Dosage: 2 MG D1
     Dates: start: 20220506
  18. TIGECYCLINE [Concomitant]
     Active Substance: TIGECYCLINE
     Dosage: UNK
     Dates: start: 20220318
  19. DOXORUBICIN [Concomitant]
     Active Substance: DOXORUBICIN
     Indication: Chemotherapy
     Dosage: LIPOSOMAL 40 MG
     Dates: start: 20220319
  20. GEMCITABINE [Concomitant]
     Active Substance: GEMCITABINE
     Indication: Chemotherapy
     Dosage: 1600 MG
     Dates: start: 20220319
  21. VINORELBINE [Concomitant]
     Active Substance: VINORELBINE TARTRATE
     Indication: Chemotherapy
     Dosage: 30 MG
     Dates: start: 20220319
  22. VORICONAZOLE [Concomitant]
     Active Substance: VORICONAZOLE
  23. MEROPENEM [Concomitant]
     Active Substance: MEROPENEM
     Indication: Infection
     Dosage: UNK
     Dates: start: 20220407
  24. MEROPENEM [Concomitant]
     Active Substance: MEROPENEM
     Dosage: 500 MG
     Dates: start: 20220504
  25. MEROPENEM [Concomitant]
     Active Substance: MEROPENEM
     Dosage: UNK
     Dates: start: 20220507
  26. CASPOFUNGIN [Concomitant]
     Active Substance: CASPOFUNGIN
     Dosage: 50 MG QD
     Dates: start: 20220407
  27. CASPOFUNGIN [Concomitant]
     Active Substance: CASPOFUNGIN
     Dosage: UNK
     Dates: start: 20220507
  28. LEVETIRACETAM [Concomitant]
     Active Substance: LEVETIRACETAM
     Indication: Prophylaxis
     Dosage: UNK
     Dates: start: 20220408

REACTIONS (10)
  - Disease recurrence [Fatal]
  - Respiratory failure [Fatal]
  - Septic shock [Fatal]
  - Immune effector cell-associated neurotoxicity syndrome [Unknown]
  - Cytokine release syndrome [Unknown]
  - Pneumonia fungal [Unknown]
  - Perianal streptococcal infection [Unknown]
  - Anal abscess [Unknown]
  - Hypogammaglobulinaemia [Unknown]
  - Electrolyte imbalance [Unknown]

NARRATIVE: CASE EVENT DATE: 20220410
